FAERS Safety Report 8546547-8 (Version None)
Quarter: 2012Q3

REPORT INFORMATION
  Report Type: 
  Country: None (occurrence: None)
  Receive Date: 20120727
  Receipt Date: 20120123
  Transmission Date: 20120928
  Serious: No
  Sender: FDA-Public Use
  Company Number: US-ASTRAZENECA-2011SE77896

PATIENT
  Age: 52 Year
  Sex: Female
  Weight: 152.9 kg

DRUGS (8)
  1. CLONAZEPAM [Concomitant]
  2. SEROQUEL XR [Suspect]
     Route: 048
  3. LISINOPRIL AND HYDROCHLOROTHIAZIDE [Concomitant]
  4. SIMVASTATIN [Concomitant]
  5. SEROQUEL XR [Suspect]
     Indication: BIPOLAR DISORDER
     Route: 048
  6. DEPAKOTE [Concomitant]
     Indication: MENTAL DISABILITY
  7. CLONAZEPAM [Concomitant]
  8. PRAVASTATIN [Concomitant]

REACTIONS (6)
  - INSOMNIA [None]
  - NERVOUSNESS [None]
  - DRUG DOSE OMISSION [None]
  - TREMOR [None]
  - HYPERHIDROSIS [None]
  - MEMORY IMPAIRMENT [None]
